FAERS Safety Report 6084011-9 (Version None)
Quarter: 2009Q1

REPORT INFORMATION
  Report Type: 
  Country: None (occurrence: None)
  Receive Date: 20090219
  Receipt Date: 20090209
  Transmission Date: 20090719
  Serious: Yes (Death, Other)
  Sender: FDA-Public Use
  Company Number: US-PFIZER INC-2006004113

PATIENT
  Sex: Male

DRUGS (3)
  1. CELEBREX [Suspect]
     Indication: ARTHRITIS
     Route: 065
  2. BEXTRA [Suspect]
     Route: 065
  3. VIOXX [Concomitant]
     Route: 065

REACTIONS (3)
  - CARDIO-RESPIRATORY ARREST [None]
  - HAEMORRHAGIC STROKE [None]
  - MYOCARDIAL INFARCTION [None]
